FAERS Safety Report 8431596-0 (Version None)
Quarter: 2012Q2

REPORT INFORMATION
  Report Type: 
  Country: None (occurrence: None)
  Receive Date: 20120613
  Receipt Date: 20120601
  Transmission Date: 20120825
  Serious: Yes (Other)
  Sender: FDA-Public Use
  Company Number: US-JNJFOC-20120601675

PATIENT
  Sex: Female
  Weight: 95.71 kg

DRUGS (3)
  1. SALAGEN [Suspect]
     Indication: SJOGREN'S SYNDROME
     Route: 048
     Dates: start: 20100101, end: 20100101
  2. SALAGEN [Suspect]
     Route: 048
     Dates: start: 20100101, end: 20100101
  3. REMICADE [Suspect]
     Indication: RHEUMATOID ARTHRITIS
     Route: 042
     Dates: end: 20120522

REACTIONS (4)
  - SJOGREN'S SYNDROME [None]
  - ADVERSE EVENT [None]
  - SINUSITIS [None]
  - INFECTION [None]
